FAERS Safety Report 13456675 (Version 1)
Quarter: 2017Q2

REPORT INFORMATION
  Report Type: Spontaneous
  Country: DE (occurrence: DE)
  Receive Date: 20170418
  Receipt Date: 20170418
  Transmission Date: 20170830
  Serious: Yes (Other)
  Sender: FDA-Public Use
  Company Number: DE-BAUSCH-BL-2017-010180

PATIENT
  Age: 4 Year
  Sex: Female

DRUGS (1)
  1. GENT-OPHTAL AUGENTROPFEN [Suspect]
     Active Substance: GENTAMICIN SULFATE
     Indication: HORDEOLUM
     Route: 065
     Dates: start: 20170405

REACTIONS (2)
  - Corneal opacity [Unknown]
  - Accidental exposure to product [Unknown]

NARRATIVE: CASE EVENT DATE: 20170405
